FAERS Safety Report 8776988 (Version 1)
Quarter: 2012Q4

REPORT INFORMATION
  Report Type: 
  Country: JP (occurrence: JP)
  Receive Date: 20120911
  Receipt Date: 20120911
  Transmission Date: 20130627
  Serious: Yes (Other)
  Sender: FDA-Public Use
  Company Number: JP-GLAXOSMITHKLINE-B0828687A

PATIENT
  Age: 6 None
  Sex: Male

DRUGS (10)
  1. LAMICTAL [Suspect]
     Indication: EPILEPSY
     Dosage: 25MG Per day
     Route: 048
     Dates: start: 20120829
  2. MEILAX [Concomitant]
     Route: 048
  3. RISPERDAL [Concomitant]
     Route: 065
  4. DIAZEPAM [Concomitant]
     Route: 065
  5. REFLEX (JAPAN) [Concomitant]
     Route: 048
  6. DEPAS [Concomitant]
     Route: 048
  7. BAYASPIRIN [Concomitant]
     Route: 048
  8. TAKEPRON [Concomitant]
     Route: 065
  9. DIOVAN [Concomitant]
     Route: 048
  10. GASMOTIN [Concomitant]
     Route: 048

REACTIONS (2)
  - Rhabdomyolysis [Unknown]
  - Blood creatine phosphokinase increased [Recovering/Resolving]
